FAERS Safety Report 8625206-7 (Version None)
Quarter: 2012Q3

REPORT INFORMATION
  Report Type: 
  Country: None (occurrence: None)
  Receive Date: 20120827
  Receipt Date: 20120820
  Transmission Date: 20120928
  Serious: Yes (Hospitalization, Other)
  Sender: FDA-Public Use
  Company Number: US-BAXTER-2012BAX013978

PATIENT
  Sex: Female

DRUGS (2)
  1. TYLENOL W/ CODEINE [Suspect]
     Indication: PAIN
     Route: 065
  2. DIANEAL [Suspect]
     Indication: PERITONEAL DIALYSIS
     Route: 033

REACTIONS (2)
  - UNEVALUABLE EVENT [None]
  - ENCEPHALOPATHY [None]
